FAERS Safety Report 6283419-6 (Version None)
Quarter: 2009Q3

REPORT INFORMATION
  Report Type: 
  Country: None (occurrence: None)
  Receive Date: 20090724
  Receipt Date: 20090723
  Transmission Date: 20100115
  Serious: Yes (Hospitalization, Other)
  Sender: FDA-Public Use
  Company Number: US-BIOGENIDEC-2009BI021768

PATIENT
  Age: 46 Year
  Sex: Female

DRUGS (26)
  1. TYSABRI [Suspect]
     Indication: MULTIPLE SCLEROSIS
     Route: 042
     Dates: start: 20070216, end: 20090617
  2. ZOLOFT [Concomitant]
  3. KLONOPIN [Concomitant]
  4. LYRICA [Concomitant]
  5. LYRICA [Concomitant]
  6. LEXAPRO [Concomitant]
  7. KEPPRA [Concomitant]
     Dates: start: 20090501
  8. DIOVAN [Concomitant]
  9. FLAGYL [Concomitant]
  10. LANTUS [Concomitant]
     Indication: DIABETES MELLITUS
  11. HUMULIN INSULIN [Concomitant]
     Indication: DIABETES MELLITUS
  12. LIPITOR [Concomitant]
  13. BACLOFEN [Concomitant]
  14. NADOLOL [Concomitant]
     Indication: HEADACHE
  15. LEVOXYL [Concomitant]
  16. OMEPRAZOLE [Concomitant]
  17. SINGULAIR [Concomitant]
  18. WELLBUTRIN [Concomitant]
  19. ATENOLOL [Concomitant]
  20. MECLIZINE [Concomitant]
  21. ZANAFLEX [Concomitant]
     Indication: MUSCLE SPASMS
  22. ZANAFLEX [Concomitant]
     Dates: start: 20090430
  23. TRAZODONE HCL [Concomitant]
  24. DEPAKOTE [Concomitant]
  25. TYLENOL [Concomitant]
  26. PROMETHAZINE [Concomitant]

REACTIONS (8)
  - APHASIA [None]
  - ATAXIA [None]
  - BACK PAIN [None]
  - CONVULSION [None]
  - IMMUNE RECONSTITUTION SYNDROME [None]
  - MENTAL STATUS CHANGES [None]
  - MULTIPLE SCLEROSIS RELAPSE [None]
  - PROGRESSIVE MULTIFOCAL LEUKOENCEPHALOPATHY [None]
